FAERS Safety Report 5866978-4 (Version None)
Quarter: 2008Q3

REPORT INFORMATION
  Report Type: 
  Country: None (occurrence: None)
  Receive Date: 20080827
  Receipt Date: 20080818
  Transmission Date: 20090109
  Serious: Yes (Death, Disabling, Other)
  Sender: FDA-Public Use
  Company Number: 2002001251-FJ

PATIENT
  Age: 49 Year
  Sex: Male
  Weight: 57 kg

DRUGS (8)
  1. PROGRAF [Suspect]
     Indication: LIVER TRANSPLANT
     Dosage: 5 MG, BID, ORAL
     Route: 048
     Dates: start: 20020227, end: 20020306
  2. FLUCONAZOLE [Suspect]
     Dosage: 200 MG, UID/QD, IV NOS
     Route: 042
     Dates: start: 20020228, end: 20020306
  3. PANIPENEM/BETAMIPRON(PANIPENEM/BETAMIPRON) INJECTION [Suspect]
     Dosage: 0.5 G, TID, IV NOS
     Route: 042
     Dates: start: 20020304, end: 20020306
  4. CLINDAMYCIN(CLINDAMYCIN) INJECTION [Suspect]
     Dosage: 600 MG, BID, IV NOS
     Route: 042
     Dates: start: 20020303, end: 20020306
  5. ACYCLOVIR [Suspect]
     Dosage: 250 MG, TID, IV NOS
     Route: 042
     Dates: start: 20020227, end: 20020306
  6. POTASSIUM CANRENOATE (POTASSIUM CANRENOATE) INJECTION [Concomitant]
  7. MYCOPHENOLIC ACID [Concomitant]
  8. METHYLPREDNISOLONE SODIUM SUCCINATE (METHYLPREDNISOLONE SODIUM SUCCINA [Concomitant]

REACTIONS (9)
  - BRAIN OEDEMA [None]
  - CARDIAC ARREST [None]
  - CONTINUOUS HAEMODIAFILTRATION [None]
  - HEPATIC FUNCTION ABNORMAL [None]
  - LIVER INJURY [None]
  - RENAL DISORDER [None]
  - RESPIRATORY ARREST [None]
  - RESPIRATORY FAILURE [None]
  - SPUTUM RETENTION [None]
